FAERS Safety Report 9491915 (Version 1)
Quarter: 2013Q3

REPORT INFORMATION
  Report Type: Report from Study
  Country: DE (occurrence: DE)
  Receive Date: 20130830
  Receipt Date: 20130830
  Transmission Date: 20140515
  Serious: Yes (Other)
  Sender: FDA-Public Use
  Company Number: DE-ABBOTT-13P-062-1140633-00

PATIENT
  Age: 50 Year
  Sex: Male

DRUGS (1)
  1. KALETRA [Suspect]
     Indication: HIV INFECTION
     Dosage: 2X2 DAILY
     Dates: start: 20110616

REACTIONS (3)
  - Intervertebral disc protrusion [Unknown]
  - Intervertebral discitis [Unknown]
  - Back pain [Unknown]
